FAERS Safety Report 6942590-0 (Version None)
Quarter: 2010Q3

REPORT INFORMATION
  Report Type: 
  Country: None (occurrence: None)
  Receive Date: 20100826
  Receipt Date: 20100817
  Transmission Date: 20110219
  Serious: Yes (Hospitalization)
  Sender: FDA-Public Use
  Company Number: DE-ABBOTT-10P-062-0655802-00

PATIENT
  Sex: Female

DRUGS (1)
  1. VALPROATE CHRONO WINTHROP [Suspect]
     Indication: EPILEPSY

REACTIONS (2)
  - DISTURBANCE IN ATTENTION [None]
  - DRUG LEVEL ABOVE THERAPEUTIC [None]
